FAERS Safety Report 5226976-0 (Version None)
Quarter: 2007Q1

REPORT INFORMATION
  Report Type: 
  Country: None (occurrence: None)
  Receive Date: 20070130
  Receipt Date: 20070118
  Transmission Date: 20070707
  Serious: Yes (Life-Threatening, Hospitalization, Other)
  Sender: FDA-Public Use
  Company Number: GXKR2006GB04780

PATIENT
  Age: 64 Year
  Sex: Female
  Weight: 65 kg

DRUGS (7)
  1. AMOXICILLIN [Suspect]
     Indication: LOWER RESPIRATORY TRACT INFECTION
     Dosage: 500 MG, TID, ORAL
     Route: 048
     Dates: start: 20060508, end: 20060512
  2. IBUPROFEN [Suspect]
     Indication: DRUG USE FOR UNKNOWN INDICATION
  3. NAPROXEN [Suspect]
     Indication: ARTHRALGIA
     Dosage: 250 MG, TID, ORAL
     Route: 048
     Dates: start: 20051004
  4. ADCAL-DE (CALCIUM CARBONATE, COLECALCIFEROL) [Concomitant]
  5. BUMETANIDE [Concomitant]
  6. CO-CODAMOL (CODEINE PHOSPHATE, PARACETAMOL) [Concomitant]
  7. KLIOVANCE (ESTRADIOL, NORETHISTERONE ACETATE) [Concomitant]

REACTIONS (5)
  - AUTOIMMUNE HEPATITIS [None]
  - ENCEPHALITIS [None]
  - HEPATIC NECROSIS [None]
  - LIVER TRANSPLANT [None]
  - NO THERAPEUTIC RESPONSE [None]
